FAERS Safety Report 13177105 (Version 1)
Quarter: 2017Q1

REPORT INFORMATION
  Report Type: Report from Study
  Country: US (occurrence: US)
  Receive Date: 20170201
  Receipt Date: 20170201
  Transmission Date: 20170428
  Serious: No
  Sender: FDA-Public Use
  Company Number: US-EXELIXIS-CABO-16007125

PATIENT
  Sex: Male

DRUGS (5)
  1. AMOXICILLIN. [Concomitant]
     Active Substance: AMOXICILLIN
  2. CABOMETYX [Suspect]
     Active Substance: CABOZANTINIB S-MALATE
     Indication: RENAL CANCER
     Dosage: 60 MG, QD
     Route: 048
     Dates: start: 20160817, end: 201609
  3. KEPPRA [Concomitant]
     Active Substance: LEVETIRACETAM
  4. NORVASC [Concomitant]
     Active Substance: AMLODIPINE BESYLATE
  5. CABOMETYX [Suspect]
     Active Substance: CABOZANTINIB S-MALATE
     Dosage: 40 MG, QD
     Route: 048
     Dates: start: 20160921

REACTIONS (4)
  - Pain in extremity [Unknown]
  - Liver function test increased [Unknown]
  - Oral pain [Unknown]
  - Dental care [Unknown]
